FAERS Safety Report 8314773-9 (Version None)
Quarter: 2012Q2

REPORT INFORMATION
  Report Type: 
  Country: None (occurrence: None)
  Receive Date: 20120426
  Receipt Date: 20081103
  Transmission Date: 20120825
  Serious: Yes (Hospitalization)
  Sender: FDA-Public Use
  Company Number: US-TEVA-US024967

PATIENT
  Age: 45 Year
  Sex: Female

DRUGS (2)
  1. PROVIGIL [Suspect]
  2. SEROQUEL [Concomitant]
     Indication: BIPOLAR DISORDER

REACTIONS (1)
  - HYPOMANIA [None]
